FAERS Safety Report 9290911 (Version 2)
Quarter: 2013Q2

REPORT INFORMATION
  Report Type: Spontaneous
  Country: FR (occurrence: FR)
  Receive Date: 20130515
  Receipt Date: 20130517
  Transmission Date: 20140414
  Serious: Yes (Hospitalization)
  Sender: FDA-Public Use
  Company Number: FR-JNJFOC-20130503956

PATIENT
  Sex: Male

DRUGS (2)
  1. NICORETTE INVISIPATCH 25MG/16H [Suspect]
     Route: 062
  2. NICORETTE INVISIPATCH 25MG/16H [Suspect]
     Indication: TOBACCO ABUSE
     Route: 062

REACTIONS (1)
  - Dermatitis allergic [Unknown]
